FAERS Safety Report 17950445 (Version 1)
Quarter: 2020Q2

REPORT INFORMATION
  Report Type: Spontaneous
  Country: PL (occurrence: PL)
  Receive Date: 20200626
  Receipt Date: 20200626
  Transmission Date: 20200714
  Serious: Yes (Other)
  Sender: FDA-Public Use
  Company Number: PL-ROCHE-2630487

PATIENT
  Sex: Male

DRUGS (15)
  1. BENDAMUSTINE [Suspect]
     Active Substance: BENDAMUSTINE
     Dosage: 2ND LINE TREATMENT, CYCLE 4
     Route: 042
     Dates: start: 20200506
  2. GAZYVARO [Suspect]
     Active Substance: OBINUTUZUMAB
     Dosage: 2ND LINE TREATMENT, CYCLE 2
     Route: 042
     Dates: start: 20200228
  3. BENDAMUSTINE [Suspect]
     Active Substance: BENDAMUSTINE
     Dosage: 2ND LINE TREATMENT, CYCLE 2
     Route: 042
     Dates: start: 20200228
  4. GAZYVARO [Suspect]
     Active Substance: OBINUTUZUMAB
     Indication: B-CELL LYMPHOMA
     Dosage: 2ND LINE TREATMENT
     Route: 042
     Dates: start: 20200131
  5. BENDAMUSTINE [Suspect]
     Active Substance: BENDAMUSTINE
     Dosage: 2ND LINE TREATMENT, CYCLE 5
     Route: 042
     Dates: start: 20200609
  6. BENDAMUSTINE [Suspect]
     Active Substance: BENDAMUSTINE
     Dosage: 2ND LINE TREATMENT, CYCLE 3
     Route: 042
     Dates: start: 20200330
  7. CYCLOPHOSPHAMIDE. [Suspect]
     Active Substance: CYCLOPHOSPHAMIDE
     Indication: B-CELL LYMPHOMA
     Dosage: 1ST LINE TREATMENT
     Route: 065
     Dates: start: 20191008
  8. DOXORUBICIN HYDROCHLORIDE. [Suspect]
     Active Substance: DOXORUBICIN HYDROCHLORIDE
     Indication: B-CELL LYMPHOMA
     Dosage: 1ST LINE TREATMENT
     Route: 065
     Dates: start: 20191008
  9. VINCRISTINE [Suspect]
     Active Substance: VINCRISTINE
     Indication: B-CELL LYMPHOMA
     Dosage: 1ST LINE TREATMENT
     Route: 065
     Dates: start: 20191008
  10. PREDNISOLONE. [Suspect]
     Active Substance: PREDNISOLONE
     Indication: B-CELL LYMPHOMA
     Dosage: 1ST LINE TREATMENT
     Route: 065
     Dates: start: 20191008
  11. GAZYVARO [Suspect]
     Active Substance: OBINUTUZUMAB
     Dosage: 2ND LINE TREATMENT, CYCLE 3
     Route: 042
     Dates: start: 20200330
  12. MABTHERA [Suspect]
     Active Substance: RITUXIMAB
     Indication: B-CELL LYMPHOMA
     Dosage: 1ST LINE TREATMENT
     Route: 065
     Dates: start: 20191008
  13. BENDAMUSTINE [Suspect]
     Active Substance: BENDAMUSTINE
     Indication: B-CELL LYMPHOMA
     Dosage: 2ND LINE TREATMENT
     Route: 042
     Dates: start: 20200131
  14. GAZYVARO [Suspect]
     Active Substance: OBINUTUZUMAB
     Dosage: 2ND LINE TREATMENT, CYCLE 4
     Route: 042
     Dates: start: 20200506
  15. GAZYVARO [Suspect]
     Active Substance: OBINUTUZUMAB
     Dosage: 2ND LINE TREATMENT, CYCLE 5
     Route: 042
     Dates: start: 20200609

REACTIONS (4)
  - Feeling cold [Recovered/Resolved]
  - Drug resistance [Unknown]
  - Neutropenia [Unknown]
  - Granulocytopenia [Unknown]

NARRATIVE: CASE EVENT DATE: 2020
